FAERS Safety Report 19408904 (Version 1)
Quarter: 2021Q2

REPORT INFORMATION
  Report Type: Spontaneous
  Country: US (occurrence: US)
  Receive Date: 20210613
  Receipt Date: 20210613
  Transmission Date: 20210717
  Serious: No
  Sender: FDA-Public Use
  Company Number: US-TEVA-2021-US-1914144

PATIENT
  Age: 80 Year
  Sex: Female
  Weight: 72.57 kg

DRUGS (4)
  1. ESTROGEN [Concomitant]
     Active Substance: ESTROGENS
     Dosage: 1/2 OF AN ESTROGEN 0.06MG PILL IN THE MORNING
  2. MELOXICAM. [Concomitant]
     Active Substance: MELOXICAM
     Indication: SPONDYLITIS
     Dosage: 1/2 OF A MELOXICAM 15MG TABLET AT NIGHT
  3. CEFALEXIN [Suspect]
     Active Substance: CEPHALEXIN
     Dosage: 200 MILLIGRAM DAILY; 1 CEPHALEXIN 200MG NIGHTLY
     Route: 065
     Dates: start: 202103
  4. CEFALEXIN [Suspect]
     Active Substance: CEPHALEXIN
     Indication: KIDNEY INFECTION
     Dosage: CEPHALEXIN 500MG FOR 2?1/2 WEEKS
     Route: 065
     Dates: start: 202103

REACTIONS (7)
  - Bronchitis [Unknown]
  - Vomiting [Recovered/Resolved]
  - Cough [Unknown]
  - Fatigue [Unknown]
  - Wound [Unknown]
  - Weight decreased [Unknown]
  - Asthenia [Unknown]

NARRATIVE: CASE EVENT DATE: 202103
